FAERS Safety Report 6409470-0 (Version None)
Quarter: 2009Q4

REPORT INFORMATION
  Report Type: 
  Country: None (occurrence: None)
  Receive Date: 20091016
  Receipt Date: 20091009
  Transmission Date: 20100525
  Serious: Yes (Hospitalization, Other)
  Sender: FDA-Public Use
  Company Number: AMI0014976

PATIENT
  Age: 72 Year
  Sex: Female

DRUGS (40)
  1. TIMOLOL MALEATE [Suspect]
     Dosage: 046
     Route: 047
     Dates: start: 20000501, end: 20000524
  2. VIOXX [Suspect]
     Indication: ARTHRITIS
     Dosage: 25MG QD OR BID PER OS
     Dates: start: 20010901
  3. ATIVAN [Concomitant]
  4. BIAXIN [Concomitant]
  5. CATAPRES [Concomitant]
  6. CLARINEX [Concomitant]
  7. CLARITIN [Concomitant]
  8. DARVOCET-N 100 [Concomitant]
  9. ASPIRIN [Concomitant]
  10. ESTRACE [Concomitant]
  11. FLBXERIL [Concomitant]
  12. FOSAMAX [Concomitant]
  13. K-DUR [Concomitant]
  14. LASIX (FURSEMIDE) [Concomitant]
  15. MUCINEX [Concomitant]
  16. MYCOSTATIN [Concomitant]
  17. NEXIUM [Concomitant]
  18. NORCO [Concomitant]
  19. ORAFLEX [Concomitant]
  20. PLAVIX [Concomitant]
  21. PRED PORTE [Concomitant]
  22. PRILOSEC [Concomitant]
  23. RAZADYNE [Concomitant]
  24. REMINYL [Concomitant]
  25. SALAGEN [Concomitant]
  26. XANAX [Concomitant]
  27. ZOCOR [Concomitant]
  28. ZOLOFT [Concomitant]
  29. [THERAPY UNSPECIFIED] [Concomitant]
  30. ALPRAZOLAM [Concomitant]
  31. ATROPINE [Concomitant]
  32. CYANOCOBALAMIN [Concomitant]
  33. ESTRADIOL [Concomitant]
  34. ESTROGENS: (UNSPECIFIED) [Concomitant]
  35. GABAPENTIN [Concomitant]
  36. LATANOPROST [Concomitant]
  37. MECLIZINE [Concomitant]
  38. NITROGLYCERIN [Concomitant]
  39. QUINAPRIL HCL [Concomitant]
  40. ZINC SULFATE [Concomitant]

REACTIONS (80)
  - ANGINA PECTORIS [None]
  - ATAXIA [None]
  - BALANCE DISORDER [None]
  - BILIARY TRACT DISORDER [None]
  - BLOOD PRESSURE DIASTOLIC INCREASED [None]
  - CACHEXIA [None]
  - CARDIOMEGALY [None]
  - CAROTID BRUIT [None]
  - CATABOLIC STATE [None]
  - CATARACT [None]
  - CELLULITIS [None]
  - CEREBRAL ARTERIOSCLEROSIS [None]
  - CEREBRAL ATROPHY [None]
  - CEREBROVASCULAR ACCIDENT [None]
  - CERVICAL CYST [None]
  - COMPRESSION FRACTURE [None]
  - CONTUSION [None]
  - COORDINATION ABNORMAL [None]
  - CORNEAL ABRASION [None]
  - DEHYDRATION [None]
  - DEMENTIA ALZHEIMER'S TYPE [None]
  - DIZZINESS [None]
  - DYSARTHRIA [None]
  - DYSPNOEA [None]
  - ELECTROCARDIOGRAM T WAVE ABNORMAL [None]
  - EMOTIONAL DISTRESS [None]
  - EYE DISORDER [None]
  - FAECAL INCONTINENCE [None]
  - FALL [None]
  - GAIT DISTURBANCE [None]
  - GALLBLADDER DISORDER [None]
  - GASTROOESOPHAGEAL REFLUX DISEASE [None]
  - HAEMATURIA [None]
  - HEAD INJURY [None]
  - HEADACHE [None]
  - HEART RATE IRREGULAR [None]
  - HEMIPARESIS [None]
  - HYPERCATABOLISM [None]
  - HYPERGLYCAEMIA [None]
  - HYPERLIPIDAEMIA [None]
  - HYPERTENSION [None]
  - HYPOKALAEMIA [None]
  - HYPONATRAEMIA [None]
  - HYPOPHAGIA [None]
  - INTERVERTEBRAL DISC DEGENERATION [None]
  - ISCHAEMIC STROKE [None]
  - KYPHOSCOLIOSIS [None]
  - LACUNAR INFARCTION [None]
  - LETHARGY [None]
  - LIVER DISORDER [None]
  - LIVER FUNCTION TEST ABNORMAL [None]
  - LOSS OF CONSCIOUSNESS [None]
  - LUMBAR SPINAL STENOSIS [None]
  - MALNUTRITION [None]
  - MENTAL STATUS CHANGES [None]
  - MUSCULAR WEAKNESS [None]
  - NAUSEA [None]
  - NEURITIS [None]
  - NEURODEGENERATIVE DISORDER [None]
  - NORMOCHROMIC NORMOCYTIC ANAEMIA [None]
  - ORTHOSTATIC HYPOTENSION [None]
  - OSTEOPOROSIS [None]
  - PEDAL PULSE DECREASED [None]
  - POLLAKIURIA [None]
  - PRESYNCOPE [None]
  - RADIUS FRACTURE [None]
  - RENAL DISORDER [None]
  - RENAL FAILURE [None]
  - SCIATICA [None]
  - SKELETAL INJURY [None]
  - SPINAL COLUMN STENOSIS [None]
  - SPINAL COMPRESSION FRACTURE [None]
  - SUPRAVENTRICULAR EXTRASYSTOLES [None]
  - SYNCOPE [None]
  - TRANSIENT ISCHAEMIC ATTACK [None]
  - UPPER LIMB FRACTURE [None]
  - VASCULAR DEMENTIA [None]
  - VERTIGO [None]
  - VOMITING [None]
  - WEIGHT DECREASED [None]
